FAERS Safety Report 22388070 (Version 1)
Quarter: 2023Q2

REPORT INFORMATION
  Report Type: Spontaneous
  Country: US (occurrence: None)
  Receive Date: 20230530
  Receipt Date: 20230530
  Transmission Date: 20230722
  Serious: No
  Sender: FDA-Public Use
  Company Number: None

PATIENT
  Age: 71 Year

DRUGS (13)
  1. CAPECITABINE [Suspect]
     Active Substance: CAPECITABINE
     Indication: Cholangiocarcinoma
     Dosage: OTHER QUANTITY : 3T 14D ON 7D OFF;?FREQUENCY : TWICE A DAY;?
     Route: 048
     Dates: start: 20230505
  2. CAPECITABINE [Suspect]
     Active Substance: CAPECITABINE
     Indication: Cholangiocarcinoma
     Dosage: OTHER QUANTITY : 1T 14D ON/7D OFF;?FREQUENCY : TWICE A DAY;?
     Route: 048
     Dates: start: 20230505
  3. CALTRATE [Concomitant]
     Active Substance: CALCIUM CARBONATE
  4. MINERALS\VITAMINS [Concomitant]
     Active Substance: MINERALS\VITAMINS
  5. PROCHLORPERAZINE [Concomitant]
  6. DUONEB [Concomitant]
     Active Substance: ALBUTEROL SULFATE\IPRATROPIUM BROMIDE
  7. HEPARIN [Concomitant]
  8. ONDANSETRON [Concomitant]
  9. MIRALAX [Concomitant]
     Active Substance: POLYETHYLENE GLYCOL 3350
  10. MUPIROCIN [Concomitant]
  11. PEPCID [Concomitant]
     Active Substance: FAMOTIDINE
  12. SYMBICORT [Concomitant]
     Active Substance: BUDESONIDE\FORMOTEROL FUMARATE DIHYDRATE
  13. VENTOLIN [Concomitant]

REACTIONS (1)
  - Peripheral swelling [None]

NARRATIVE: CASE EVENT DATE: 20230527
